FAERS Safety Report 5273166-1 (Version None)
Quarter: 2007Q1

REPORT INFORMATION
  Report Type: 
  Country: None (occurrence: None)
  Receive Date: 20070322
  Receipt Date: 20070312
  Transmission Date: 20070707
  Serious: Yes (Hospitalization)
  Sender: FDA-Public Use
  Company Number: FR-PFIZER INC-2007019411

PATIENT
  Age: 44 Year
  Sex: Male

DRUGS (3)
  1. ANSATIPINE [Suspect]
     Route: 048
     Dates: start: 20051111, end: 20061209
  2. ETHAMBUTOL HYDROCHLORIDE [Concomitant]
     Route: 048
  3. CLARITHROMYCIN [Concomitant]
     Route: 048

REACTIONS (1)
  - ALANINE AMINOTRANSFERASE INCREASED [None]
